FAERS Safety Report 7817075-X (Version None)
Quarter: 2011Q4

REPORT INFORMATION
  Report Type: 
  Country: None (occurrence: None)
  Receive Date: 20111017
  Receipt Date: 20111011
  Transmission Date: 20120403
  Serious: Yes (Death)
  Sender: FDA-Public Use
  Company Number: PHHY2011SE89633

PATIENT

DRUGS (3)
  1. CYCLOSPORINE [Suspect]
     Indication: HEART TRANSPLANT
     Dosage: UNK UKN, UNK
  2. PREDNISONE [Concomitant]
     Indication: HEART TRANSPLANT
     Dosage: UNK UKN, UNK
  3. AZATHIOPRINE [Concomitant]
     Indication: HEART TRANSPLANT
     Dosage: UNK UKN, UNK

REACTIONS (1)
  - DEATH [None]
